FAERS Safety Report 7259282-3 (Version None)
Quarter: 2011Q1

REPORT INFORMATION
  Report Type: 
  Country: None (occurrence: None)
  Receive Date: 20110129
  Receipt Date: 20100802
  Transmission Date: 20110831
  Serious: No
  Sender: FDA-Public Use
  Company Number: US-ABBOTT-10P-163-0661096-00

PATIENT
  Age: 34 Year
  Sex: Female

DRUGS (5)
  1. ACTINEL [Concomitant]
     Indication: PRODUCT USED FOR UNKNOWN INDICATION
  2. LOWESTRIN [Concomitant]
     Indication: PRODUCT USED FOR UNKNOWN INDICATION
  3. SUPPLEMENTS [Concomitant]
     Indication: PRODUCT USED FOR UNKNOWN INDICATION
  4. HUMIRA [Suspect]
     Indication: CROHN'S DISEASE
     Route: 058
     Dates: start: 20100601
  5. ENTECORT [Concomitant]
     Indication: PRODUCT USED FOR UNKNOWN INDICATION

REACTIONS (1)
  - DIARRHOEA [None]
